FAERS Safety Report 5849530-6 (Version None)
Quarter: 2008Q3

REPORT INFORMATION
  Report Type: 
  Country: None (occurrence: None)
  Receive Date: 20080819
  Receipt Date: 20080808
  Transmission Date: 20090109
  Serious: Yes (Hospitalization)
  Sender: FDA-Public Use
  Company Number: B0532504A

PATIENT
  Age: 71 Year
  Sex: Male

DRUGS (3)
  1. AUGMENTIN [Suspect]
     Indication: POSTOPERATIVE CARE
     Route: 048
     Dates: start: 20080716, end: 20080723
  2. PROPOXYPHENE HCL AND ACETAMINOPHEN [Suspect]
     Indication: POSTOPERATIVE CARE
     Route: 048
     Dates: start: 20080716, end: 20080720
  3. LOVENOX [Suspect]
     Indication: POSTOPERATIVE CARE
     Route: 058
     Dates: start: 20080715, end: 20080723

REACTIONS (6)
  - ANGIOEDEMA [None]
  - DYSPHONIA [None]
  - MUCOUS MEMBRANE DISORDER [None]
  - PAINFUL RESPIRATION [None]
  - RASH GENERALISED [None]
  - RASH MACULO-PAPULAR [None]
